FAERS Safety Report 6891217-5 (Version None)
Quarter: 2010Q3

REPORT INFORMATION
  Report Type: 
  Country: None (occurrence: None)
  Receive Date: 20100731
  Receipt Date: 20090629
  Transmission Date: 20110219
  Serious: No
  Sender: FDA-Public Use
  Company Number: US-PFIZER INC-2009233348

PATIENT
  Age: 75 Year
  Sex: Female

DRUGS (7)
  1. LIPITOR [Suspect]
  2. VERAPAMIL HCL [Suspect]
  3. IBANDRONIC ACID [Suspect]
     Indication: OSTEOPENIA
     Dosage: 150 MG, 1 PER 1 MONTH
     Route: 048
     Dates: start: 20070101
  4. FUROSEMIDE [Concomitant]
  5. NEXIUM [Concomitant]
  6. RAMIPRIL [Concomitant]
  7. NAPROSYN [Concomitant]

REACTIONS (1)
  - PAIN IN EXTREMITY [None]
